FAERS Safety Report 7703750-4 (Version None)
Quarter: 2011Q3

REPORT INFORMATION
  Report Type: 
  Country: None (occurrence: None)
  Receive Date: 20110823
  Receipt Date: 20110819
  Transmission Date: 20111222
  Serious: Yes (Other)
  Sender: FDA-Public Use
  Company Number: US-PFIZER INC-2011192686

PATIENT
  Sex: Male
  Weight: 65.76 kg

DRUGS (1)
  1. ALAVERT [Suspect]
     Indication: HYPERSENSITIVITY
     Dosage: 10 MG, DAILY
     Route: 048
     Dates: start: 20110101

REACTIONS (4)
  - GASTROINTESTINAL INFECTION [None]
  - HYPOGEUSIA [None]
  - MALAISE [None]
  - DYSGEUSIA [None]
